FAERS Safety Report 17193897 (Version 1)
Quarter: 2019Q4

REPORT INFORMATION
  Report Type: Spontaneous
  Country: BR (occurrence: BR)
  Receive Date: 20191223
  Receipt Date: 20191223
  Transmission Date: 20200122
  Serious: Yes (Hospitalization)
  Sender: FDA-Public Use
  Company Number: BR-BIOMARINAP-BR-2019-127597

PATIENT
  Age: 19 Year
  Sex: Male
  Weight: 21 kg

DRUGS (1)
  1. VIMIZIM [Suspect]
     Active Substance: ELOSULFASE ALFA
     Indication: MUCOPOLYSACCHARIDOSIS IV
     Dosage: UNK, QW
     Route: 042
     Dates: start: 2014

REACTIONS (4)
  - Pneumonia [Not Recovered/Not Resolved]
  - Fatigue [Not Recovered/Not Resolved]
  - Productive cough [Not Recovered/Not Resolved]
  - Pain [Not Recovered/Not Resolved]

NARRATIVE: CASE EVENT DATE: 20191210
